FAERS Safety Report 6097404-0 (Version None)
Quarter: 2009Q1

REPORT INFORMATION
  Report Type: 
  Country: None (occurrence: None)
  Receive Date: 20090227
  Receipt Date: 20080310
  Transmission Date: 20090719
  Serious: No
  Sender: FDA-Public Use
  Company Number: A0714332A

PATIENT
  Age: 67 Year
  Sex: Female

DRUGS (6)
  1. IMITREX [Suspect]
     Indication: MIGRAINE
     Dosage: 6MG AS REQUIRED
     Route: 058
     Dates: start: 19980101
  2. LEXAPRO [Suspect]
     Indication: ANXIETY
     Dosage: 10MG PER DAY
     Route: 048
     Dates: start: 20080303, end: 20080304
  3. IMITREX TABLETS [Concomitant]
  4. VITAMIN [Concomitant]
  5. CALCIUM [Concomitant]
  6. PRILOSEC [Concomitant]

REACTIONS (2)
  - DRUG INTERACTION [None]
  - NAUSEA [None]
